FAERS Safety Report 8415932-7 (Version None)
Quarter: 2012Q2

REPORT INFORMATION
  Report Type: 
  Country: None (occurrence: None)
  Receive Date: 20120530
  Receipt Date: 20120514
  Transmission Date: 20120825
  Serious: Yes (Other)
  Sender: FDA-Public Use
  Company Number: 2012P1027282

PATIENT
  Age: 27 Year
  Sex: Female

DRUGS (3)
  1. ZOLPIDEM [Suspect]
     Indication: INSOMNIA
     Dosage: 10-20 MG; QD, 100-200 MG; QD
  2. ZOLPIDEM [Suspect]
     Indication: ANXIETY
     Dosage: 10-20 MG; QD, 100-200 MG; QD
  3. ZOLPIDEM [Suspect]
     Indication: MOOD SWINGS
     Dosage: 10-20 MG; QD, 100-200 MG; QD

REACTIONS (17)
  - POSTURING [None]
  - PYURIA [None]
  - BLOOD PRESSURE INCREASED [None]
  - TREMOR [None]
  - TACHYCARDIA [None]
  - WITHDRAWAL SYNDROME [None]
  - HAEMATURIA [None]
  - SPEECH DISORDER [None]
  - WAXY FLEXIBILITY [None]
  - HYPERHIDROSIS [None]
  - DROOLING [None]
  - MUSCLE RIGIDITY [None]
  - LEUKOCYTOSIS [None]
  - PROTRUSION TONGUE [None]
  - IMMOBILE [None]
  - STARING [None]
  - RESPIRATORY RATE INCREASED [None]
